FAERS Safety Report 6944993-7 (Version None)
Quarter: 2010Q3

REPORT INFORMATION
  Report Type: 
  Country: None (occurrence: None)
  Receive Date: 20100827
  Receipt Date: 20100820
  Transmission Date: 20110219
  Serious: Yes (Hospitalization)
  Sender: FDA-Public Use
  Company Number: CH-BAYER-201025772GPV

PATIENT
  Age: 81 Year
  Sex: Male

DRUGS (16)
  1. ASPIRIN [Suspect]
     Indication: ATRIAL FIBRILLATION
     Dosage: TOTAL DAILY DOSE: 100 MG  UNIT DOSE: 100 MG
     Route: 048
     Dates: end: 20100414
  2. ROCEPHIN [Suspect]
     Indication: PNEUMONIA ASPIRATION
     Dosage: TOTAL DAILY DOSE: 2 G
     Route: 040
     Dates: start: 20100402, end: 20100412
  3. LAMICTAL [Suspect]
     Indication: EPILEPSY
     Dosage: TOTAL DAILY DOSE: 25 MG
     Route: 048
     Dates: start: 20100402, end: 20100414
  4. CONCOR [Concomitant]
     Dosage: TOTAL DAILY DOSE: 2.5 MG
     Route: 048
  5. APROVEL [Concomitant]
     Dosage: TOTAL DAILY DOSE: 150 MG
     Route: 048
     Dates: end: 20100402
  6. TOREM [Concomitant]
     Indication: RENAL FAILURE CHRONIC
     Dosage: TOTAL DAILY DOSE: 20 MG
     Route: 048
  7. ZYLORIC [Concomitant]
     Route: 048
  8. METOLAZON [Concomitant]
     Dosage: AS USED: 2.5 MG
     Route: 048
     Dates: start: 20100405, end: 20100405
  9. ACETAMINOPHEN [Concomitant]
     Route: 048
  10. URBANYL [Concomitant]
     Indication: EPILEPSY
     Dosage: TOTAL DAILY DOSE: 20 MG
     Route: 048
     Dates: start: 20100403
  11. KLACID [Concomitant]
     Indication: PNEUMONIA ASPIRATION
     Dosage: TOTAL DAILY DOSE: 500 MG
     Route: 041
     Dates: start: 20100402, end: 20100412
  12. PANTOPRAZOLE SODIUM [Concomitant]
     Dates: start: 20100403
  13. FRAGMIN [Concomitant]
     Dosage: TOTAL DAILY DOSE: 250 IU
     Route: 058
     Dates: start: 20100409, end: 20100419
  14. PERENTEROL [Concomitant]
     Route: 048
     Dates: start: 20100409, end: 20100422
  15. XYZAL [Concomitant]
     Route: 048
     Dates: start: 20100409, end: 20100422
  16. AMOXICILLIN [Concomitant]
     Indication: PNEUMONIA
     Dosage: TOTAL DAILY DOSE: 1500 MG
     Route: 048
     Dates: start: 20100419, end: 20100424

REACTIONS (8)
  - ACUTE MYOCARDIAL INFARCTION [None]
  - EPISTAXIS [None]
  - GASTRIC ULCER [None]
  - GASTROINTESTINAL HAEMORRHAGE [None]
  - HAEMORRHAGIC ANAEMIA [None]
  - MELAENA [None]
  - PETECHIAE [None]
  - THROMBOCYTOPENIA [None]
